FAERS Safety Report 15167582 (Version 1)
Quarter: 2018Q3

REPORT INFORMATION
  Report Type: Spontaneous
  Country: US (occurrence: US)
  Receive Date: 20180719
  Receipt Date: 20180719
  Transmission Date: 20181010
  Serious: Yes (Hospitalization)
  Sender: FDA-Public Use
  Company Number: US-ELI_LILLY_AND_COMPANY-US201807005406

PATIENT
  Sex: Female

DRUGS (3)
  1. NOVOLIN N [Suspect]
     Active Substance: INSULIN HUMAN
     Indication: PRODUCT USED FOR UNKNOWN INDICATION
     Dosage: UNK, UNKNOWN
     Route: 065
  2. NOVOLIN N [Suspect]
     Active Substance: INSULIN HUMAN
     Dosage: UNK, UNKNOWN
     Route: 065
     Dates: start: 20180629
  3. HUMULIN N [Suspect]
     Active Substance: INSULIN HUMAN
     Indication: PRODUCT USED FOR UNKNOWN INDICATION
     Dosage: UNK, UNKNOWN
     Route: 058
     Dates: start: 20180606, end: 20180629

REACTIONS (8)
  - Dehydration [Recovered/Resolved]
  - Myocardial infarction [Recovered/Resolved]
  - Dyspnoea [Recovered/Resolved]
  - Wrong drug administered [Recovered/Resolved]
  - Dizziness [Recovered/Resolved]
  - Gait inability [Recovered/Resolved]
  - Renal failure [Recovered/Resolved]
  - Blood glucose increased [Recovered/Resolved]

NARRATIVE: CASE EVENT DATE: 20180606
